FAERS Safety Report 25034421 (Version 3)
Quarter: 2025Q3

REPORT INFORMATION
  Report Type: Spontaneous
  Country: JP (occurrence: JP)
  Receive Date: 20250304
  Receipt Date: 20250915
  Transmission Date: 20251020
  Serious: Yes (Other)
  Sender: MERCK SHARP & DOHME LLC
  Company Number: JP-009507513-2259666

PATIENT
  Age: 69 Year
  Sex: Male

DRUGS (4)
  1. KEYTRUDA [Suspect]
     Active Substance: PEMBROLIZUMAB
  2. KEYTRUDA [Suspect]
     Active Substance: PEMBROLIZUMAB
     Dosage: 200 MGX1/3 WEEKS
     Route: 041
  3. CISPLATIN [Concomitant]
     Active Substance: CISPLATIN
     Dosage: 75MG/M2X1/3 WEEKS
     Route: 041
  4. GEMCITABINE [Concomitant]
     Active Substance: GEMCITABINE
     Route: 041

REACTIONS (7)
  - Neutrophil count decreased [Unknown]
  - Decreased appetite [Unknown]
  - Platelet count decreased [Unknown]
  - White blood cell count decreased [Unknown]
  - Nausea [Unknown]
  - Hiccups [Unknown]
  - Constipation [Unknown]
